FAERS Safety Report 9935106 (Version 3)
Quarter: 2014Q2

REPORT INFORMATION
  Report Type: Spontaneous
  Country: CO (occurrence: CO)
  Receive Date: 20140228
  Receipt Date: 20140515
  Transmission Date: 20141212
  Serious: Yes (Other)
  Sender: FDA-Public Use
  Company Number: CO-PFIZER INC-2014056785

PATIENT
  Age: 87 Year
  Sex: Female

DRUGS (1)
  1. XALATAN [Suspect]
     Indication: GLAUCOMA
     Dosage: UNK, 1X/ DAY
     Route: 047
     Dates: start: 2011

REACTIONS (3)
  - Cataract [Unknown]
  - Nephropathy [Not Recovered/Not Resolved]
  - Gait disturbance [Not Recovered/Not Resolved]
